FAERS Safety Report 24551425 (Version 1)
Quarter: 2024Q4

REPORT INFORMATION
  Report Type: Report from Study
  Country: CN (occurrence: CN)
  Receive Date: 20241026
  Receipt Date: 20241026
  Transmission Date: 20250115
  Serious: Yes (Death)
  Sender: ROCHE
  Company Number: CN-ROCHE-10000114368

PATIENT
  Age: 88 Year
  Sex: Female

DRUGS (1)
  1. TECENTRIQ [Suspect]
     Active Substance: ATEZOLIZUMAB
     Indication: Hepatic cancer
     Route: 042
     Dates: start: 20240205

REACTIONS (1)
  - Disease progression [Fatal]
